FAERS Safety Report 7248268-0 (Version None)
Quarter: 2011Q1

REPORT INFORMATION
  Report Type: 
  Country: None (occurrence: None)
  Receive Date: 20110127
  Receipt Date: 20101213
  Transmission Date: 20110831
  Serious: Yes (Death, Other)
  Sender: FDA-Public Use
  Company Number: US-BAXTER-2009BH018000

PATIENT
  Age: 79 Year
  Sex: Male
  Weight: 106 kg

DRUGS (24)
  1. PLAVIX [Concomitant]
     Indication: PRODUCT USED FOR UNKNOWN INDICATION
     Route: 048
  2. ELAVIL [Concomitant]
     Indication: PRODUCT USED FOR UNKNOWN INDICATION
     Route: 048
  3. LEVAQUIN [Concomitant]
     Indication: PRODUCT USED FOR UNKNOWN INDICATION
     Route: 065
  4. CENTRUM SILVER [Concomitant]
     Indication: PRODUCT USED FOR UNKNOWN INDICATION
     Route: 065
  5. TERAZOSIN HCL [Concomitant]
     Indication: PRODUCT USED FOR UNKNOWN INDICATION
     Route: 065
  6. CELEBREX [Concomitant]
     Indication: PRODUCT USED FOR UNKNOWN INDICATION
     Route: 065
  7. ALLOPURINOL [Concomitant]
     Indication: PRODUCT USED FOR UNKNOWN INDICATION
     Route: 048
  8. LOVENOX [Suspect]
     Route: 058
     Dates: start: 20071031, end: 20071101
  9. HEPARIN SODIUM INJECTION [Suspect]
     Route: 042
     Dates: start: 20071031
  10. LOVENOX [Suspect]
     Route: 058
     Dates: start: 20071101, end: 20071105
  11. HEPARIN SODIUM INJECTION [Suspect]
     Route: 042
     Dates: start: 20071113, end: 20071113
  12. WARFARIN SODIUM [Suspect]
     Route: 048
     Dates: end: 20071030
  13. DICLOXACILLIN [Concomitant]
     Indication: PRODUCT USED FOR UNKNOWN INDICATION
     Route: 065
  14. WARFARIN SODIUM [Suspect]
     Indication: ANTICOAGULANT THERAPY
     Route: 048
     Dates: start: 20071031
  15. LOVENOX [Suspect]
     Indication: PRODUCT USED FOR UNKNOWN INDICATION
     Route: 058
     Dates: start: 20071031, end: 20071031
  16. LASIX [Concomitant]
     Indication: PRODUCT USED FOR UNKNOWN INDICATION
     Route: 048
  17. RESTORIL [Concomitant]
     Indication: PRODUCT USED FOR UNKNOWN INDICATION
     Route: 048
  18. LATANOPROST [Concomitant]
     Indication: PRODUCT USED FOR UNKNOWN INDICATION
     Route: 047
  19. HEPARIN SODIUM INJECTION [Suspect]
     Indication: CHOLECYSTECTOMY
     Route: 042
     Dates: start: 20071112, end: 20071112
  20. HEPARIN SODIUM 1,000 UNITS AND SODIUM CHLORIDE 0.9% [Suspect]
     Indication: PRODUCT USED FOR UNKNOWN INDICATION
     Route: 065
  21. WARFARIN SODIUM [Suspect]
     Route: 048
     Dates: end: 20071030
  22. POTASSIUM [Concomitant]
     Indication: PRODUCT USED FOR UNKNOWN INDICATION
     Route: 065
  23. HYTRIN [Concomitant]
     Indication: PRODUCT USED FOR UNKNOWN INDICATION
     Route: 065
  24. COLCHICINE [Concomitant]
     Indication: PRODUCT USED FOR UNKNOWN INDICATION
     Route: 065

REACTIONS (8)
  - COAGULOPATHY [None]
  - CHOLECYSTITIS INFECTIVE [None]
  - GLOMERULONEPHRITIS ACUTE [None]
  - TOXICITY TO VARIOUS AGENTS [None]
  - VENTRICULAR TACHYCARDIA [None]
  - CARDIAC HYPERTROPHY [None]
  - INTRA-ABDOMINAL HAEMATOMA [None]
  - PNEUMONIA KLEBSIELLA [None]
